FAERS Safety Report 7771952-7 (Version None)
Quarter: 2011Q3

REPORT INFORMATION
  Report Type: 
  Country: None (occurrence: None)
  Receive Date: 20110922
  Receipt Date: 20100330
  Transmission Date: 20111222
  Serious: No
  Sender: FDA-Public Use
  Company Number: US-ASTRAZENECA-2006UW14356

PATIENT
  Age: 43 Year
  Sex: Female
  Weight: 64.4 kg

DRUGS (8)
  1. REMERON [Concomitant]
     Dates: start: 20020114
  2. SEROQUEL [Suspect]
     Indication: BIPOLAR DISORDER
     Dosage: 100-400 MG
     Route: 048
     Dates: start: 20010101, end: 20060101
  3. SEROQUEL [Suspect]
     Dosage: STRENGTH - 25 - 200 MG
     Route: 048
     Dates: start: 20011009
  4. DEPAKOTE [Concomitant]
     Dates: start: 20051128
  5. CLONAZEPAM [Concomitant]
     Dates: start: 20010824
  6. TRAZODONE HYDROCHLORIDE [Concomitant]
     Dates: start: 20020114
  7. ZYPREXA [Suspect]
     Indication: BIPOLAR DISORDER
     Dosage: 5-15 MG
     Route: 048
     Dates: start: 19980101, end: 20050101
  8. PAXIL [Concomitant]
     Dates: start: 20011009

REACTIONS (2)
  - DIABETIC COMPLICATION [None]
  - TYPE 2 DIABETES MELLITUS [None]
